FAERS Safety Report 13071047 (Version 1)
Quarter: 2016Q4

REPORT INFORMATION
  Report Type: Spontaneous
  Country: US (occurrence: US)
  Receive Date: 20161229
  Receipt Date: 20161229
  Transmission Date: 20170207
  Serious: No
  Sender: FDA-Public Use
  Company Number: US-LEO PHARMA-245285

PATIENT
  Age: 66 Year
  Sex: Male

DRUGS (3)
  1. PICATO [Suspect]
     Active Substance: INGENOL MEBUTATE
     Indication: ACTINIC KERATOSIS
     Route: 061
     Dates: start: 20161221
  2. PICATO [Suspect]
     Active Substance: INGENOL MEBUTATE
  3. PICATO [Suspect]
     Active Substance: INGENOL MEBUTATE

REACTIONS (3)
  - Application site exfoliation [Not Recovered/Not Resolved]
  - Inappropriate schedule of drug administration [Unknown]
  - Application site vesicles [Not Recovered/Not Resolved]
